FAERS Safety Report 7822181-X (Version None)
Quarter: 2011Q4

REPORT INFORMATION
  Report Type: 
  Country: None (occurrence: None)
  Receive Date: 20111018
  Receipt Date: 20111010
  Transmission Date: 20120403
  Serious: Yes (Other)
  Sender: FDA-Public Use
  Company Number: GB-JNJFOC-20110807143

PATIENT

DRUGS (6)
  1. DOXORUBICIN HCL [Suspect]
     Indication: HODGKIN'S DISEASE
     Route: 042
  2. DOXORUBICIN HCL [Suspect]
     Route: 065
  3. BLEOMYCIN SULFATE [Suspect]
     Indication: HODGKIN'S DISEASE
     Route: 065
  4. FILGRASTIM [Suspect]
     Indication: HODGKIN'S DISEASE
     Dosage: PEGYLATED-FILGRASTIM
     Route: 065
  5. VINBLASTINE SULFATE [Suspect]
     Indication: HODGKIN'S DISEASE
     Route: 065
  6. DACARBAZINE [Suspect]
     Indication: HODGKIN'S DISEASE
     Route: 065

REACTIONS (1)
  - NEUROPATHY PERIPHERAL [None]
